FAERS Safety Report 6058934-0 (Version None)
Quarter: 2009Q1

REPORT INFORMATION
  Report Type: 
  Country: None (occurrence: None)
  Receive Date: 20090130
  Receipt Date: 20090121
  Transmission Date: 20090719
  Serious: Yes (Hospitalization)
  Sender: FDA-Public Use
  Company Number: FR-BRISTOL-MYERS SQUIBB COMPANY-14479109

PATIENT
  Age: 70 Year
  Sex: Female

DRUGS (6)
  1. ORENCIA [Suspect]
     Route: 042
     Dates: start: 20080711
  2. FLUOXETINE HCL [Suspect]
  3. THERALENE [Suspect]
     Dosage: THERALENE 4%
  4. SELOKEN [Suspect]
     Dosage: SELOKEN LP
  5. LORAZEPAM [Suspect]
  6. TRANXENE [Suspect]

REACTIONS (3)
  - FALL [None]
  - LOSS OF CONSCIOUSNESS [None]
  - MALAISE [None]
